FAERS Safety Report 6372093-6 (Version None)
Quarter: 2009Q3

REPORT INFORMATION
  Report Type: 
  Country: None (occurrence: None)
  Receive Date: 20090917
  Receipt Date: 20090904
  Transmission Date: 20100115
  Serious: Yes (Hospitalization)
  Sender: FDA-Public Use
  Company Number: ADR18712009

PATIENT
  Age: 28 Year
  Sex: Female

DRUGS (11)
  1. SALBUTAMOL (MFR: UNKNOWN) [Suspect]
     Indication: ASTHMA
     Dosage: 5 MG, INHALATION
     Route: 055
  2. AMINOPHYLLINE [Concomitant]
  3. FLUTICASONE PROPIONATE [Concomitant]
  4. FORMOTEROL FUMARATE (UNKNOWN) [Concomitant]
  5. HYDROCORTISONE (200 MG) [Concomitant]
  6. MAGNESIUM SULPHATE (2 G) [Concomitant]
  7. OXYGEN (UNKNOWN) [Concomitant]
  8. PREDNISOLONE (40 MG) [Concomitant]
  9. SALINE BUFFERED [Concomitant]
  10. TERBUTALINE (UNKNOWN) [Concomitant]
  11. VERAPAMIL [Concomitant]

REACTIONS (2)
  - ABDOMINAL PAIN LOWER [None]
  - HYPERLACTACIDAEMIA [None]
